FAERS Safety Report 20164390 (Version 1)
Quarter: 2021Q4

REPORT INFORMATION
  Report Type: Report from Study
  Country: FR (occurrence: FR)
  Receive Date: 20211209
  Receipt Date: 20211209
  Transmission Date: 20220303
  Serious: Yes (Hospitalization)
  Sender: FDA-Public Use
  Company Number: FR-NOVARTISPH-NVSC2020FR138921

PATIENT
  Sex: Male
  Weight: 70 kg

DRUGS (2)
  1. VOTRIENT [Suspect]
     Active Substance: PAZOPANIB HYDROCHLORIDE
     Indication: Renal cancer metastatic
     Dosage: UNK
     Route: 048
     Dates: start: 20181015
  2. VOTRIENT [Suspect]
     Active Substance: PAZOPANIB HYDROCHLORIDE
     Dosage: 600 MG, QD
     Route: 048
     Dates: start: 20190225, end: 20200409

REACTIONS (4)
  - Groin pain [Recovered/Resolved with Sequelae]
  - Haematoma muscle [Recovered/Resolved with Sequelae]
  - Paraesthesia [Unknown]
  - Haematoma [Unknown]

NARRATIVE: CASE EVENT DATE: 20200407
